FAERS Safety Report 14373504 (Version 1)
Quarter: 2018Q1

REPORT INFORMATION
  Report Type: Report from Study
  Country: US (occurrence: US)
  Receive Date: 20180110
  Receipt Date: 20180110
  Transmission Date: 20180509
  Serious: Yes (Hospitalization, Other)
  Sender: FDA-Public Use
  Company Number: US-GILEAD-2018-0314404

PATIENT
  Age: 65 Year
  Sex: Female

DRUGS (1)
  1. RANOLAZINE. [Suspect]
     Active Substance: RANOLAZINE
     Indication: ANGINA PECTORIS
     Dosage: 500 MG, UNK
     Route: 048
     Dates: start: 2015

REACTIONS (6)
  - Product use issue [Unknown]
  - Angina pectoris [Unknown]
  - Musculoskeletal pain [Unknown]
  - Arthropathy [Unknown]
  - Limb injury [Unknown]
  - Balance disorder [Unknown]

NARRATIVE: CASE EVENT DATE: 20171223
